FAERS Safety Report 9515442 (Version 1)
Quarter: 2013Q3

REPORT INFORMATION
  Report Type: Spontaneous
  Country: RU (occurrence: RU)
  Receive Date: 20130911
  Receipt Date: 20130911
  Transmission Date: 20140515
  Serious: Yes (Other)
  Sender: FDA-Public Use
  Company Number: PHHY2013RU099548

PATIENT
  Sex: Male

DRUGS (2)
  1. SANDOSTATIN [Suspect]
     Dosage: 0.05 MG, DAILY
  2. SANDOSTATIN [Suspect]
     Dosage: 0.1 MG, DAILY
     Dates: end: 20130814

REACTIONS (5)
  - Cerebrovascular accident [Recovered/Resolved with Sequelae]
  - Face oedema [Not Recovered/Not Resolved]
  - General physical health deterioration [Not Recovered/Not Resolved]
  - Erythema [Not Recovered/Not Resolved]
  - Decreased appetite [Not Recovered/Not Resolved]
